FAERS Safety Report 6417253-0 (Version None)
Quarter: 2009Q4

REPORT INFORMATION
  Report Type: 
  Country: None (occurrence: None)
  Receive Date: 20091027
  Receipt Date: 20091027
  Transmission Date: 20100525
  Serious: Yes (Hospitalization)
  Sender: FDA-Public Use
  Company Number: None

PATIENT
  Age: 73 Year
  Sex: Male
  Weight: 84 kg

DRUGS (9)
  1. OXYCODONE [Suspect]
     Indication: PAIN
     Dosage: 5 MG PO Q 6 H
     Route: 048
     Dates: start: 20090828, end: 20090902
  2. AMIODARONE [Concomitant]
  3. ASPIRIN [Concomitant]
  4. LANTHANUM CARBONATE [Concomitant]
  5. LABETALOL [Concomitant]
  6. VITAMIN B COMPLEX CAP [Concomitant]
  7. CLOPIDOGREL [Concomitant]
  8. VITAMIN E [Concomitant]
  9. VALACYCLOVIR [Concomitant]

REACTIONS (5)
  - CONFUSIONAL STATE [None]
  - GAIT DISTURBANCE [None]
  - HALLUCINATION, VISUAL [None]
  - MEMORY IMPAIRMENT [None]
  - MENTAL STATUS CHANGES [None]
